FAERS Safety Report 8759715 (Version 1)
Quarter: 2012Q4

REPORT INFORMATION
  Report Type: 
  Country: CN (occurrence: CN)
  Receive Date: 20120829
  Receipt Date: 20120829
  Transmission Date: 20130627
  Serious: Yes (Other)
  Sender: FDA-Public Use
  Company Number: CN-ROCHE-1103336

PATIENT
  Age: 18 Year
  Sex: Male
  Weight: 74 kg

DRUGS (3)
  1. ROCEPHIN [Suspect]
     Indication: PNEUMONIA
     Route: 041
     Dates: start: 20090111, end: 20090115
  2. AZITHROMYCIN [Suspect]
     Indication: PNEUMONIA
     Route: 048
     Dates: start: 20090108, end: 20090110
  3. PREDNISONE [Suspect]
     Indication: NEPHROTIC SYNDROME
     Route: 048
     Dates: start: 20081225, end: 20090119

REACTIONS (1)
  - Drug-induced liver injury [Recovering/Resolving]
